FAERS Safety Report 8456321-9 (Version None)
Quarter: 2012Q2

REPORT INFORMATION
  Report Type: 
  Country: None (occurrence: None)
  Receive Date: 20120621
  Receipt Date: 20120614
  Transmission Date: 20120825
  Serious: Yes (Hospitalization)
  Sender: FDA-Public Use
  Company Number: US-GLAXOSMITHKLINE-A0840559A

PATIENT
  Age: 44 Year
  Sex: Female
  Weight: 100 kg

DRUGS (2)
  1. AVANDIA [Suspect]
     Indication: DIABETES MELLITUS
     Dosage: 4MG TWICE PER DAY
     Route: 048
     Dates: start: 20030101, end: 20070201
  2. AVANDAMET [Suspect]

REACTIONS (6)
  - CHEST PAIN [None]
  - CARDIOVASCULAR DISORDER [None]
  - MULTIPLE INJURIES [None]
  - DYSPNOEA [None]
  - VOMITING [None]
  - NAUSEA [None]
